FAERS Safety Report 7632014-2 (Version None)
Quarter: 2011Q3

REPORT INFORMATION
  Report Type: 
  Country: None (occurrence: None)
  Receive Date: 20110725
  Receipt Date: 20101103
  Transmission Date: 20111222
  Serious: Yes (Hospitalization)
  Sender: FDA-Public Use
  Company Number: US-BRISTOL-MYERS SQUIBB COMPANY-14506059

PATIENT
  Age: 59 Year
  Sex: Male
  Weight: 120 kg

DRUGS (2)
  1. COUMADIN [Suspect]
     Indication: THROMBOSIS
     Dosage: INCREASED DOSAGE TO 15MG QD TOOK 10 MG FROM FEB09
  2. PERCOCET [Suspect]
     Indication: ARTHRALGIA

REACTIONS (4)
  - INTERNATIONAL NORMALISED RATIO DECREASED [None]
  - DIZZINESS [None]
  - INTERNATIONAL NORMALISED RATIO INCREASED [None]
  - GOITRE [None]
